FAERS Safety Report 5397852-8 (Version None)
Quarter: 2007Q3

REPORT INFORMATION
  Report Type: 
  Country: None (occurrence: None)
  Receive Date: 20070723
  Receipt Date: 20070723
  Transmission Date: 20080115
  Serious: Yes (Life-Threatening, Hospitalization, Disabling)
  Sender: FDA-Public Use
  Company Number: None

PATIENT
  Age: 81 Year
  Sex: Male

DRUGS (7)
  1. NAFCILLIN SODIUM [Suspect]
     Indication: ABSCESS
     Dosage: 2GM  Q4H  IV
     Route: 042
     Dates: start: 20070504, end: 20070514
  2. ADALAT [Concomitant]
  3. UROXATRAL [Concomitant]
  4. LISINOPRIL [Concomitant]
  5. ARIXTRA [Concomitant]
  6. SIMVASTATIN [Concomitant]
  7. PROTONIX [Concomitant]

REACTIONS (6)
  - DIARRHOEA [None]
  - EOSINOPHILS URINE PRESENT [None]
  - HYPOTENSION [None]
  - MENTAL STATUS CHANGES [None]
  - NEPHRITIS INTERSTITIAL [None]
  - RENAL FAILURE ACUTE [None]
